FAERS Safety Report 6575822-1 (Version None)
Quarter: 2010Q1

REPORT INFORMATION
  Report Type: 
  Country: None (occurrence: None)
  Receive Date: 20100209
  Receipt Date: 20100126
  Transmission Date: 20100710
  Serious: Yes (Life-Threatening, Hospitalization, Other)
  Sender: FDA-Public Use
  Company Number: BE-MYLANLABS-2010S1001242

PATIENT
  Age: 48 Year
  Sex: Female

DRUGS (2)
  1. VENLAFAXINE [Suspect]
     Dosage: 75 MG/DAY
  2. TRAZODONE [Suspect]
     Dosage: 200 MG/DAY

REACTIONS (2)
  - ACUTE HEPATIC FAILURE [None]
  - LIVER TRANSPLANT [None]
